FAERS Safety Report 6938032-1 (Version None)
Quarter: 2010Q3

REPORT INFORMATION
  Report Type: 
  Country: None (occurrence: None)
  Receive Date: 20100823
  Receipt Date: 20100823
  Transmission Date: 20110219
  Serious: Yes (Other)
  Sender: FDA-Public Use
  Company Number: None

PATIENT
  Age: 56 Year
  Sex: Female
  Weight: 67.1324 kg

DRUGS (1)
  1. BONIVA [Suspect]
     Indication: BONE DENSITY DECREASED
     Dosage: 1 MONTHLY PO
     Route: 048
     Dates: start: 20091107, end: 20100407

REACTIONS (12)
  - ACTIVITIES OF DAILY LIVING IMPAIRED [None]
  - ARTHRALGIA [None]
  - ARTHROPATHY [None]
  - DYSSTASIA [None]
  - HEADACHE [None]
  - JOINT RANGE OF MOTION DECREASED [None]
  - JOINT STIFFNESS [None]
  - MUSCULOSKELETAL PAIN [None]
  - NECK PAIN [None]
  - PAIN [None]
  - PAIN IN JAW [None]
  - TOOTHACHE [None]
